FAERS Safety Report 8905793 (Version 2)
Quarter: 2012Q4

REPORT INFORMATION
  Report Type: 
  Country: IT (occurrence: IT)
  Receive Date: 20121113
  Receipt Date: 20121115
  Transmission Date: 20130627
  Serious: Yes (Hospitalization)
  Sender: FDA-Public Use
  Company Number: IT-GLAXOSMITHKLINE-B0836009A

PATIENT
  Age: 88 Year
  Sex: Male
  Weight: 90 kg

DRUGS (4)
  1. PROPAFENONE [Suspect]
     Indication: ATRIAL FIBRILLATION
     Dosage: 2UD Twice per day
     Route: 048
     Dates: start: 20080101, end: 20120827
  2. CO-APROVEL [Concomitant]
     Route: 048
  3. CARDIOASPIRIN [Concomitant]
     Route: 048
  4. ALLOPURINOL [Concomitant]

REACTIONS (5)
  - Renal failure acute [Recovering/Resolving]
  - Sinus bradycardia [Recovering/Resolving]
  - Dyspnoea [Unknown]
  - Malaise [Unknown]
  - Dehydration [Recovered/Resolved]
